FAERS Safety Report 25452229 (Version 1)
Quarter: 2025Q2

REPORT INFORMATION
  Report Type: Spontaneous
  Country: US (occurrence: US)
  Receive Date: 20250618
  Receipt Date: 20250618
  Transmission Date: 20250716
  Serious: Yes (Other)
  Sender: BAYER HEALTHCARE PHARMACEUTICALS INC.
  Company Number: US-BAYER-2025A079679

PATIENT
  Age: 42 Year
  Sex: Female

DRUGS (1)
  1. MIRENA [Suspect]
     Active Substance: LEVONORGESTREL
     Indication: Contraception
     Dosage: 20?G/DAY
     Route: 015
     Dates: start: 20191001, end: 20220301

REACTIONS (6)
  - Procedural pain [None]
  - Genital haemorrhage [None]
  - Menstruation irregular [None]
  - Feeling abnormal [None]
  - Procedural pain [None]
  - Product communication issue [None]

NARRATIVE: CASE EVENT DATE: 20191001
